FAERS Safety Report 5802289-0 (Version None)
Quarter: 2008Q3

REPORT INFORMATION
  Report Type: 
  Country: None (occurrence: None)
  Receive Date: 20080707
  Receipt Date: 20080627
  Transmission Date: 20090109
  Serious: Yes (Other)
  Sender: FDA-Public Use
  Company Number: SG-PFIZER INC-2008054757

PATIENT
  Age: 44 Year
  Sex: Female

DRUGS (5)
  1. DOXYCYCLINE HCL [Suspect]
  2. AMOXICILLIN [Suspect]
  3. ACETYLSALICYLIC ACID SRT [Suspect]
  4. ERYTHROMYCIN [Suspect]
  5. DICLOFENAC SODIUM [Suspect]

REACTIONS (1)
  - DYSPNOEA [None]
